FAERS Safety Report 4357485-9 (Version None)
Quarter: 2004Q2

REPORT INFORMATION
  Report Type: 
  Country: None (occurrence: None)
  Receive Date: 20040511
  Receipt Date: 20040511
  Transmission Date: 20050107
  Serious: Yes (Hospitalization)
  Sender: FDA-Public Use
  Company Number: None

PATIENT
  Age: 28 Year
  Sex: Female
  Weight: 106 kg

DRUGS (10)
  1. RAPAMUNE [Suspect]
     Indication: RENAL TRANSPLANT
     Dosage: 5 MG ORALLY EVERY MORNING
     Route: 048
     Dates: start: 20040101, end: 20040219
  2. AMLOPIPINE [Concomitant]
  3. ATENOLOL [Concomitant]
  4. CALCITRIOL [Concomitant]
  5. DARBEPOETIN [Concomitant]
  6. FUROSEMIDE [Concomitant]
  7. FESO4 [Concomitant]
  8. MYCOPHENOLATE [Concomitant]
  9. PREDNISONE [Concomitant]
  10. SODIUM CITRATE [Concomitant]

REACTIONS (5)
  - HAEMODIALYSIS [None]
  - PNEUMONITIS [None]
  - PULMONARY ALVEOLAR HAEMORRHAGE [None]
  - RENAL IMPAIRMENT [None]
  - RESPIRATORY DISTRESS [None]
